FAERS Safety Report 6695399-X (Version None)
Quarter: 2010Q2

REPORT INFORMATION
  Report Type: 
  Country: None (occurrence: None)
  Receive Date: 20100424
  Receipt Date: 20100413
  Transmission Date: 20101027
  Serious: Yes (Other)
  Sender: FDA-Public Use
  Company Number: GB-ELI_LILLY_AND_COMPANY-GB201004003542

PATIENT
  Age: 40 Year
  Sex: Male

DRUGS (1)
  1. CYMBALTA [Suspect]
     Indication: POST-TRAUMATIC STRESS DISORDER
     Dosage: 60 MG, DAILY (1/D)
     Route: 065

REACTIONS (3)
  - MEMORY IMPAIRMENT [None]
  - OFF LABEL USE [None]
  - SUICIDE ATTEMPT [None]
